FAERS Safety Report 18383045 (Version 1)
Quarter: 2020Q4

REPORT INFORMATION
  Report Type: Not Available
  Country: US (occurrence: None)
  Receive Date: 20201014
  Receipt Date: 20201014
  Transmission Date: 20210114
  Serious: No
  Sender: FDA-Public Use
  Company Number: US-AKORN INC.-154221

PATIENT

DRUGS (1)
  1. MORPHINE SULFATE SOLUTION [Suspect]
     Active Substance: MORPHINE SULFATE

REACTIONS (2)
  - Oral pain [Unknown]
  - Abdominal pain upper [Unknown]
